FAERS Safety Report 7400032-5 (Version None)
Quarter: 2011Q2

REPORT INFORMATION
  Report Type: 
  Country: None (occurrence: None)
  Receive Date: 20110407
  Receipt Date: 20110329
  Transmission Date: 20111010
  Serious: Yes (Other)
  Sender: FDA-Public Use
  Company Number: JP-JNJFOC-20080101899

PATIENT
  Sex: Male
  Weight: 70 kg

DRUGS (17)
  1. VELCADE [Suspect]
     Route: 042
  2. DEXAMETHASONE [Concomitant]
     Indication: PRODUCT USED FOR UNKNOWN INDICATION
     Route: 042
  3. VELCADE [Suspect]
     Route: 042
  4. VELCADE [Suspect]
     Route: 042
  5. BETAMETHASONE BUTYRATE [Concomitant]
     Indication: PURPURA
     Route: 061
  6. ZOMETA [Concomitant]
     Route: 042
  7. VELCADE [Suspect]
     Indication: MULTIPLE MYELOMA
     Route: 042
  8. VELCADE [Suspect]
     Route: 042
  9. ITRIZOLE [Suspect]
     Indication: PROPHYLAXIS
     Route: 048
  10. VELCADE [Suspect]
     Route: 042
  11. DEXAMETHASONE [Concomitant]
     Indication: MULTIPLE MYELOMA
     Route: 048
  12. VELCADE [Suspect]
     Route: 042
  13. VELCADE [Suspect]
     Route: 042
  14. SULFAMETHOXAZOLE WITH TRIMETHOPRIM [Suspect]
     Indication: PROPHYLAXIS
     Route: 048
  15. DEPRODONE PROPIONATE [Concomitant]
     Indication: PURPURA
     Route: 061
  16. HEPARIN [Concomitant]
     Indication: PURPURA
     Route: 061
  17. AZULENE [Concomitant]
     Indication: PURPURA
     Route: 061

REACTIONS (10)
  - PURPURA [None]
  - WHITE BLOOD CELL COUNT DECREASED [None]
  - RESPIRATORY DISORDER [None]
  - PLATELET COUNT DECREASED [None]
  - NEUTROPHIL COUNT DECREASED [None]
  - BLOOD URIC ACID INCREASED [None]
  - BLOOD LACTATE DEHYDROGENASE INCREASED [None]
  - HEPATIC FUNCTION ABNORMAL [None]
  - C-REACTIVE PROTEIN INCREASED [None]
  - PYREXIA [None]
